FAERS Safety Report 9397163 (Version 1)
Quarter: 2013Q3

REPORT INFORMATION
  Report Type: Spontaneous
  Country: US (occurrence: US)
  Receive Date: 20130712
  Receipt Date: 20130712
  Transmission Date: 20140515
  Serious: Yes (Death, Other)
  Sender: FDA-Public Use
  Company Number: PHHY2013US073348

PATIENT
  Age: 78 Year
  Sex: Male

DRUGS (2)
  1. GLIVEC [Suspect]
     Indication: CHRONIC MYELOID LEUKAEMIA
     Dosage: UNK UKN, UNK
  2. GLIVEC [Suspect]
     Dosage: UNK UKN, UNK

REACTIONS (3)
  - Subdural haematoma [Fatal]
  - Cardiac failure congestive [Unknown]
  - Fluid retention [Unknown]
